FAERS Safety Report 14430499 (Version 1)
Quarter: 2018Q1

REPORT INFORMATION
  Report Type: Spontaneous
  Country: US (occurrence: US)
  Receive Date: 20180124
  Receipt Date: 20180124
  Transmission Date: 20180509
  Serious: No
  Sender: FDA-Public Use
  Company Number: US-ENDO PHARMACEUTICALS INC-2017-005925

PATIENT
  Sex: Male

DRUGS (2)
  1. PROMETHAZINE VC WITH CODEINE SYRUP [Suspect]
     Active Substance: CODEINE\PROMETHAZINE
     Indication: BRONCHITIS
     Dosage: 1 DF, Q4H
     Route: 048
     Dates: start: 20171030
  2. PROMETHAZINE VC WITH CODEINE SYRUP [Suspect]
     Active Substance: CODEINE\PROMETHAZINE
     Indication: INSOMNIA

REACTIONS (2)
  - Off label use [Unknown]
  - Drug ineffective [Unknown]

NARRATIVE: CASE EVENT DATE: 201710
